FAERS Safety Report 25517445 (Version 1)
Quarter: 2025Q3

REPORT INFORMATION
  Report Type: Other
  Country: EU (occurrence: EU)
  Receive Date: 20250704
  Receipt Date: 20250704
  Transmission Date: 20251020
  Serious: Yes (Other)
  Sender: GLENMARK
  Company Number: None

PATIENT
  Age: 8 Year
  Sex: Male
  Weight: 20 kg

DRUGS (1)
  1. ATOMOXETINE [Suspect]
     Active Substance: ATOMOXETINE
     Indication: Attention deficit hyperactivity disorder
     Dosage: 10 MILLIGRAM, QD (1X DAAGS 1 TABLET)
     Route: 048
     Dates: start: 20250607, end: 20250608

REACTIONS (4)
  - Facial paralysis [Recovered/Resolved]
  - Aphasia [Recovered/Resolved]
  - Eye movement disorder [Recovered/Resolved]
  - Drooling [Recovered/Resolved]
